FAERS Safety Report 6014383-2 (Version None)
Quarter: 2008Q4

REPORT INFORMATION
  Report Type: 
  Country: None (occurrence: None)
  Receive Date: 20081219
  Receipt Date: 20080522
  Transmission Date: 20090506
  Serious: No
  Sender: FDA-Public Use
  Company Number: A0729229A

PATIENT
  Sex: Male

DRUGS (5)
  1. AVODART [Suspect]
     Indication: BENIGN PROSTATIC HYPERPLASIA
     Dosage: .5MG PER DAY
     Route: 048
     Dates: start: 20060101
  2. TRAVATAN [Concomitant]
  3. NEXIUM [Concomitant]
  4. FLOMAX [Concomitant]
  5. LEVITRA [Concomitant]

REACTIONS (1)
  - DRUG INEFFECTIVE [None]
